FAERS Safety Report 5071335-7 (Version None)
Quarter: 2006Q3

REPORT INFORMATION
  Report Type: 
  Country: None (occurrence: None)
  Receive Date: 20060804
  Receipt Date: 20060126
  Transmission Date: 20061208
  Serious: No
  Sender: FDA-Public Use
  Company Number: US-AMGEN-US166576

PATIENT
  Sex: Female

DRUGS (6)
  1. ARANESP [Suspect]
     Indication: ANAEMIA OF MALIGNANT DISEASE
     Dates: start: 20060123, end: 20060126
  2. ADRIAMYCIN PFS [Concomitant]
  3. TAXOTERE [Concomitant]
  4. LISINOPRIL [Concomitant]
     Indication: ANAEMIA OF MALIGNANT DISEASE
  5. NEULASTA [Concomitant]
  6. CYCLOPHOSPHAMIDE [Concomitant]

REACTIONS (6)
  - BLOOD PRESSURE INCREASED [None]
  - CHEST PAIN [None]
  - FLUSHING [None]
  - HEADACHE [None]
  - HYPERSENSITIVITY [None]
  - TACHYCARDIA [None]
